FAERS Safety Report 24310145 (Version 1)
Quarter: 2024Q3

REPORT INFORMATION
  Report Type: Spontaneous
  Country: PL (occurrence: PL)
  Receive Date: 20240912
  Receipt Date: 20240912
  Transmission Date: 20241017
  Serious: Yes (Life-Threatening)
  Sender: CSL BEHRING
  Company Number: None

PATIENT
  Age: 15 Month
  Sex: Female
  Weight: 10 kg

DRUGS (6)
  1. PRIVIGEN [Suspect]
     Active Substance: HUMAN IMMUNOGLOBULIN G
     Dosage: REACTION AFTER ADMINISTRATION OF 7 ML OF THE DRUG, THEN THE INFUSION WAS STOPPED
     Route: 042
     Dates: start: 20240623
  2. Micafungin accord [Concomitant]
     Dosage: 9.6 MG
     Route: 042
     Dates: start: 20240620
  3. BISEPTOL [Concomitant]
     Active Substance: SULFAMETHOXAZOLE\TRIMETHOPRIM
     Dosage: 12 H
     Route: 048
     Dates: start: 20240515
  4. DEVIKAP [Concomitant]
     Dosage: 1000 IU, QD
     Route: 048
     Dates: start: 20240515
  5. LINEZOLID [Concomitant]
     Active Substance: LINEZOLID
     Dosage: 8 H
     Route: 042
     Dates: start: 20240621
  6. CETIRIZINE HYDROCHLORIDE [Concomitant]
     Active Substance: CETIRIZINE HYDROCHLORIDE
     Dosage: 2.5 MG, QD
     Route: 048
     Dates: start: 20240515

REACTIONS (4)
  - Chills [Recovered/Resolved]
  - Livedo reticularis [Recovered/Resolved]
  - Venous oxygen saturation decreased [Recovered/Resolved]
  - Tachycardia [Recovered/Resolved]

NARRATIVE: CASE EVENT DATE: 20240623
